FAERS Safety Report 7888852-4 (Version None)
Quarter: 2011Q4

REPORT INFORMATION
  Report Type: 
  Country: None (occurrence: None)
  Receive Date: 20111102
  Receipt Date: 20111102
  Transmission Date: 20120403
  Serious: Yes (Other)
  Sender: FDA-Public Use
  Company Number: None

PATIENT
  Sex: Male

DRUGS (1)
  1. APRISO [Suspect]
     Indication: COLITIS ULCERATIVE
     Dosage: 0.375G 4 CAPS ONCE DAILY ORAL
     Route: 048
     Dates: start: 20110929, end: 20111026

REACTIONS (1)
  - PANCREATITIS ACUTE [None]
